FAERS Safety Report 4964004-2 (Version None)
Quarter: 2006Q1

REPORT INFORMATION
  Report Type: 
  Country: None (occurrence: None)
  Receive Date: 20060330
  Receipt Date: 20060321
  Transmission Date: 20060701
  Serious: Yes (Other)
  Sender: FDA-Public Use
  Company Number: 2006041290

PATIENT
  Age: 57 Year
  Sex: Female
  Weight: 123.832 kg

DRUGS (12)
  1. NEURONTIN [Suspect]
     Indication: NEUROPATHY PERIPHERAL
     Dosage: 1800 MG (600 MG, 3 IN 1 D), ORAL
     Route: 048
     Dates: start: 19980101
  2. THYROID TAB [Concomitant]
  3. WELLBUTRIN [Concomitant]
  4. OXYCODONE (OXYCODONE) [Concomitant]
  5. HYDROCODONE BITARTRATE [Concomitant]
  6. AMIGESIC (SALSALATE) [Concomitant]
  7. SPIRONOLACTONE [Concomitant]
  8. PEGINTERFERON ALFA-2B (PEGINTERFERON ALFA-2B) [Concomitant]
  9. RIBAVIRIN [Concomitant]
  10. INSULIN (INSULIN) [Concomitant]
  11. FUROSEMIDE [Concomitant]
  12. COZAAR [Concomitant]

REACTIONS (4)
  - AORTIC VALVE CALCIFICATION [None]
  - DRUG INEFFECTIVE [None]
  - HEPATIC CIRRHOSIS [None]
  - PHARMACEUTICAL PRODUCT COMPLAINT [None]
